FAERS Safety Report 11335689 (Version 2)
Quarter: 2016Q3

REPORT INFORMATION
  Report Type: Spontaneous
  Country: DK (occurrence: DK)
  Receive Date: 20150804
  Receipt Date: 20160816
  Transmission Date: 20161109
  Serious: Yes (Hospitalization)
  Sender: FDA-Public Use
  Company Number: DK-PFIZER INC-2015252831

PATIENT
  Age: 46 Year
  Sex: Female
  Weight: 52 kg

DRUGS (3)
  1. PROPOLIPID [Concomitant]
     Indication: ANAESTHESIA
     Dosage: 334 MG, UNK
     Route: 042
     Dates: start: 20150720, end: 20150720
  2. TRANEXAMSYRE [Suspect]
     Active Substance: TRANEXAMIC ACID
     Indication: HAEMORRHAGE
     Dosage: 1000 MG, SINGLE
     Route: 042
     Dates: start: 20150720, end: 20150720
  3. REMIFENTANIL B. BRAUN [Concomitant]
     Indication: ANAESTHESIA
     Dosage: 1.3 MG, UNK
     Route: 042
     Dates: start: 20150720, end: 20150720

REACTIONS (5)
  - Endotracheal intubation [Recovered/Resolved]
  - Erythema [Recovered/Resolved]
  - Bronchospasm [Recovered/Resolved]
  - Hypotension [Recovered/Resolved]
  - Anaphylactic reaction [Recovered/Resolved]

NARRATIVE: CASE EVENT DATE: 20150720
